FAERS Safety Report 8929290 (Version 1)
Quarter: 2012Q4

REPORT INFORMATION
  Report Type: Spontaneous
  Country: US (occurrence: None)
  Receive Date: 20121126
  Receipt Date: 20121126
  Transmission Date: 20130627
  Serious: Yes (Death, Hospitalization, Other)
  Sender: FDA-Public Use
  Company Number: None

PATIENT
  Age: 68 Year
  Sex: Male
  Weight: 78.47 kg

DRUGS (1)
  1. JANUVIA TABLETS 100MG [Suspect]
     Indication: TYPE 2 DIABETES MELLITUS
     Dosage: 100 mg. once a day p.o.
     Route: 048
     Dates: start: 20081112, end: 20120517

REACTIONS (8)
  - Renal failure [None]
  - Weight decreased [None]
  - Urinary tract infection [None]
  - Pulmonary embolism [None]
  - Blood pressure decreased [None]
  - Septic shock [None]
  - Cardiogenic shock [None]
  - Gastrointestinal haemorrhage [None]
